FAERS Safety Report 16343554 (Version 2)
Quarter: 2019Q2

REPORT INFORMATION
  Report Type: Spontaneous
  Country: CA (occurrence: CA)
  Receive Date: 20190522
  Receipt Date: 20190531
  Transmission Date: 20190711
  Serious: Yes (Other)
  Sender: FDA-Public Use
  Company Number: CA-PFIZER INC-2019207472

PATIENT
  Age: 10 Decade
  Sex: Female

DRUGS (2)
  1. ASA [Suspect]
     Active Substance: ASPIRIN
     Dosage: 5000 IU, UNK
  2. FRAGMIN [Suspect]
     Active Substance: DALTEPARIN SODIUM
     Dosage: UNK

REACTIONS (9)
  - Off label use [Unknown]
  - Seroma [Unknown]
  - Post procedural haematoma [Unknown]
  - Haemorrhage [Unknown]
  - Post procedural swelling [Unknown]
  - Peripheral swelling [Unknown]
  - Haemoglobin decreased [Unknown]
  - Product use issue [Unknown]
  - Pain in extremity [Unknown]
